FAERS Safety Report 5812733-0 (Version None)
Quarter: 2008Q3

REPORT INFORMATION
  Report Type: 
  Country: None (occurrence: None)
  Receive Date: 20080717
  Receipt Date: 20080708
  Transmission Date: 20090109
  Serious: Yes (Life-Threatening)
  Sender: FDA-Public Use
  Company Number: JP-WYE-H04685408

PATIENT
  Age: 53 Year
  Sex: Male

DRUGS (9)
  1. ANCARON [Suspect]
     Indication: CARDIAC FAILURE
     Route: 048
     Dates: start: 20020501
  2. SALIGREN [Concomitant]
     Indication: DRUG USE FOR UNKNOWN INDICATION
     Dosage: 60MG; FREQUENCY NOT PROVIDED
     Route: 048
     Dates: start: 20080109
  3. ALOSENN [Concomitant]
     Indication: DRUG USE FOR UNKNOWN INDICATION
     Dosage: 1G; FREQUENCY NOT PROVIDED
     Route: 048
     Dates: start: 20080109
  4. SENNA [Concomitant]
     Indication: DRUG USE FOR UNKNOWN INDICATION
     Dosage: 24MG; FREQUENCY NOT PROVIDED
     Route: 048
     Dates: start: 20080109
  5. LEVOTHYROXINE SODIUM [Concomitant]
     Indication: DRUG USE FOR UNKNOWN INDICATION
     Dosage: 75MG; FREQUENCY NOT PROVIDED
     Route: 048
     Dates: start: 20080109
  6. VASOLAN [Concomitant]
     Indication: DRUG USE FOR UNKNOWN INDICATION
     Dosage: 120MG; FREQUENCY NOT PROVIDED
     Route: 048
     Dates: start: 20080109
  7. BROMHEXINE HYDROCHLORIDE [Concomitant]
     Indication: DRUG USE FOR UNKNOWN INDICATION
     Dosage: 12MG; FREQUENCY NOT PROVIDED
     Route: 048
     Dates: start: 20080109
  8. INTERFERON ALFA [Concomitant]
     Indication: RENAL CELL CARCINOMA
     Dosage: UNKNOWN
     Route: 065
  9. PARIET [Concomitant]
     Indication: DRUG USE FOR UNKNOWN INDICATION
     Dosage: 10MG; FREQUENCY NOT PROVIDED
     Route: 048
     Dates: start: 20080109

REACTIONS (3)
  - ANOREXIA [None]
  - DRUG INTERACTION [None]
  - VENTRICULAR TACHYCARDIA [None]
